FAERS Safety Report 23862200 (Version 6)
Quarter: 2024Q3

REPORT INFORMATION
  Report Type: Spontaneous
  Country: US (occurrence: US)
  Receive Date: 20240516
  Receipt Date: 20240920
  Transmission Date: 20241017
  Serious: Yes (Hospitalization, Other)
  Sender: RANBAXY
  Company Number: US-SUN PHARMACEUTICAL INDUSTRIES LTD-2024R1-429657

PATIENT
  Sex: Female
  Weight: 65.306 kg

DRUGS (9)
  1. EPOPROSTENOL [Suspect]
     Active Substance: EPOPROSTENOL
     Indication: Pulmonary arterial hypertension
     Dosage: 1.5 MILLIGRAM/VIAL/CONTINUOOUS
     Route: 042
     Dates: start: 20240111
  2. EPOPROSTENOL [Suspect]
     Active Substance: EPOPROSTENOL
     Dosage: 12 NG/KG/MIN/CONTINUOUS
     Route: 042
     Dates: start: 20240111
  3. EPOPROSTENOL [Suspect]
     Active Substance: EPOPROSTENOL
     Dosage: 12 NG/KG/MIN/CONTINUOUS
     Route: 042
     Dates: start: 20240111
  4. EPOPROSTENOL [Suspect]
     Active Substance: EPOPROSTENOL
     Dosage: 12 NG/KG/MIN CONTINUOUS
     Route: 042
     Dates: start: 20240111
  5. EPOPROSTENOL [Suspect]
     Active Substance: EPOPROSTENOL
     Dosage: 12 NG/KG/MIN CONTINUOUS
     Route: 042
  6. SILDENAFIL CITRATE [Concomitant]
     Active Substance: SILDENAFIL CITRATE
     Indication: Product used for unknown indication
     Dosage: UNK
     Route: 065
  7. SYMBICORT [Concomitant]
     Active Substance: BUDESONIDE\FORMOTEROL FUMARATE DIHYDRATE
     Indication: Product used for unknown indication
     Dosage: UNK
     Route: 065
  8. DIPHENHYDRAMINE HYDROCHLORIDE [Concomitant]
     Active Substance: DIPHENHYDRAMINE HYDROCHLORIDE
     Indication: Product used for unknown indication
     Dosage: UNK
     Route: 065
  9. SIMETHICONE (DIMETHICONE) [Concomitant]
     Active Substance: DIMETHICONE
     Indication: Product used for unknown indication
     Dosage: UNK
     Route: 065

REACTIONS (14)
  - Device leakage [Unknown]
  - Vascular device infection [Unknown]
  - Rash [Unknown]
  - Pruritus [Unknown]
  - Tinnitus [Unknown]
  - Sinus disorder [Unknown]
  - Decreased appetite [Unknown]
  - Dyspnoea [Unknown]
  - Sinusitis [Unknown]
  - Skin irritation [Unknown]
  - Injection site erythema [Unknown]
  - Myalgia [Unknown]
  - Complication associated with device [Unknown]
  - Mechanical urticaria [Recovering/Resolving]
